FAERS Safety Report 19914072 (Version 2)
Quarter: 2022Q1

REPORT INFORMATION
  Report Type: Spontaneous
  Country: US (occurrence: US)
  Receive Date: 20211005
  Receipt Date: 20220106
  Transmission Date: 20220423
  Serious: Yes (Hospitalization, Other)
  Sender: FDA-Public Use
  Company Number: US-BEH-2021136440

PATIENT
  Age: 72 Year
  Sex: Female

DRUGS (1)
  1. HIZENTRA [Suspect]
     Active Substance: HUMAN IMMUNOGLOBULIN G
     Indication: Immunodeficiency common variable
     Dosage: 17 GRAM, QW
     Route: 058
     Dates: start: 202007

REACTIONS (7)
  - COVID-19 pneumonia [Unknown]
  - Cough [Unknown]
  - Fall [Unknown]
  - Head injury [Unknown]
  - Dyspnoea [Unknown]
  - Pyrexia [Unknown]
  - Fracture [Unknown]

NARRATIVE: CASE EVENT DATE: 20210913
